FAERS Safety Report 10926927 (Version 4)
Quarter: 2015Q2

REPORT INFORMATION
  Report Type: Spontaneous
  Country: FR (occurrence: FR)
  Receive Date: 20150318
  Receipt Date: 20150421
  Transmission Date: 20150821
  Serious: Yes (Other)
  Sender: FDA-Public Use
  Company Number: FR-ASTRAZENECA-2015SE23069

PATIENT
  Age: 71 Year
  Sex: Female
  Weight: 55 kg

DRUGS (9)
  1. TENORETIC [Suspect]
     Active Substance: ATENOLOL\CHLORTHALIDONE
     Indication: HYPERTENSION
     Dosage: 50 MG + 12.5 MG 1 DF AT MORNING
     Route: 048
     Dates: start: 20150309
  2. SEROPLEX [Concomitant]
     Active Substance: ESCITALOPRAM OXALATE
  3. MOPRAL [Concomitant]
     Active Substance: OMEPRAZOLE SODIUM
  4. CANDESARTAN HYDROCHLOROTHIAZIDE BIOGARAN [Suspect]
     Active Substance: CANDESARTAN CILEXETIL\HYDROCHLOROTHIAZIDE
     Indication: HYPERTENSION
     Dosage: 16 MG + 12.5 MG , NON-AZ PRODUCT
     Route: 065
     Dates: start: 2015, end: 2015
  5. KENZEN [Concomitant]
     Active Substance: CANDESARTAN
     Indication: HYPERTENSION
  6. ATENOLOL BIOGARAN [Concomitant]
     Indication: HYPERTENSION
     Dates: end: 2015
  7. OMEPRAZOLE. [Concomitant]
     Active Substance: OMEPRAZOLE
  8. PANTOPRAZOLE [Concomitant]
     Active Substance: PANTOPRAZOLE SODIUM
  9. ATENOLOL. [Suspect]
     Active Substance: ATENOLOL
     Indication: HYPERTENSION
     Route: 065
     Dates: start: 2015, end: 20150309

REACTIONS (15)
  - Weight decreased [Not Recovered/Not Resolved]
  - Dizziness [Not Recovered/Not Resolved]
  - Headache [Not Recovered/Not Resolved]
  - Hypotension [Not Recovered/Not Resolved]
  - Heart rate increased [Not Recovered/Not Resolved]
  - Tremor [Not Recovered/Not Resolved]
  - Haematemesis [Not Recovered/Not Resolved]
  - Decreased appetite [Not Recovered/Not Resolved]
  - Depression [Not Recovered/Not Resolved]
  - Hypertension [Recovered/Resolved]
  - Blood pressure fluctuation [Not Recovered/Not Resolved]
  - Nausea [Not Recovered/Not Resolved]
  - Fatigue [Recovering/Resolving]
  - Asphyxia [Recovering/Resolving]
  - Hot flush [Not Recovered/Not Resolved]

NARRATIVE: CASE EVENT DATE: 2015
